FAERS Safety Report 8122819-6 (Version None)
Quarter: 2012Q1

REPORT INFORMATION
  Report Type: 
  Country: None (occurrence: None)
  Receive Date: 20120208
  Receipt Date: 20120126
  Transmission Date: 20120608
  Serious: Yes (Other)
  Sender: FDA-Public Use
  Company Number: DE-UCBSA-050434

PATIENT
  Sex: Male

DRUGS (6)
  1. MICARDIS [Concomitant]
     Indication: HYPERTENSION
     Dates: start: 20111101
  2. ARAVA [Concomitant]
     Indication: RHEUMATOID ARTHRITIS
     Dates: start: 20071122
  3. AMLODIPINE [Concomitant]
     Indication: HYPERTENSION
     Dates: start: 20111101
  4. CIMZIA [Suspect]
     Indication: RHEUMATOID ARTHRITIS
     Route: 058
     Dates: start: 20110329
  5. PREDNISOLONE [Concomitant]
     Indication: RHEUMATOID ARTHRITIS
     Dosage: 40 BIS 5 MG AS NEEDED
     Dates: start: 20071101
  6. PREDNISOLONE [Concomitant]
     Indication: PAIN
     Dosage: 40 BIS 5 MG AS NEEDED
     Dates: start: 20071101

REACTIONS (1)
  - HERPES ZOSTER [None]
